FAERS Safety Report 15438869 (Version 1)
Quarter: 2018Q3

REPORT INFORMATION
  Report Type: Report from Study
  Country: US (occurrence: US)
  Receive Date: 20180928
  Receipt Date: 20180928
  Transmission Date: 20181010
  Serious: No
  Sender: FDA-Public Use
  Company Number: PHHY2018US108971

PATIENT
  Sex: Male
  Weight: 108 kg

DRUGS (2)
  1. INSULIN [Concomitant]
     Active Substance: INSULIN NOS
     Indication: PRODUCT USED FOR UNKNOWN INDICATION
     Dosage: UNK
     Route: 065
     Dates: start: 20161017
  2. OMNITROPE [Suspect]
     Active Substance: SOMATROPIN
     Indication: GROWTH HORMONE DEFICIENCY
     Dosage: 2.4MG 6?/WK
     Route: 058
     Dates: start: 20161017

REACTIONS (8)
  - Fear of injection [Unknown]
  - Haematuria [Unknown]
  - Asthma exercise induced [Unknown]
  - Gastrooesophageal reflux disease [Unknown]
  - Headache [Unknown]
  - Constipation [Unknown]
  - Insulin-like growth factor increased [Recovering/Resolving]
  - Blood pressure decreased [Unknown]
